FAERS Safety Report 7585819-0 (Version None)
Quarter: 2011Q2

REPORT INFORMATION
  Report Type: 
  Country: None (occurrence: None)
  Receive Date: 20110624
  Receipt Date: 20110610
  Transmission Date: 20111010
  Serious: Yes (Hospitalization, Other)
  Sender: FDA-Public Use
  Company Number: 2011MA007084

PATIENT
  Age: 56 Year
  Sex: Female

DRUGS (1)
  1. TRIAMCINOLONE ACETONIDE [Suspect]
     Indication: ENDOPHTHALMITIS

REACTIONS (4)
  - RETINAL DETACHMENT [None]
  - NO THERAPEUTIC RESPONSE [None]
  - STAPHYLOCOCCUS TEST POSITIVE [None]
  - ENDOPHTHALMITIS [None]
